FAERS Safety Report 21415520 (Version 2)
Quarter: 2022Q4

REPORT INFORMATION
  Report Type: Report from Study
  Country: TN (occurrence: TN)
  Receive Date: 20221006
  Receipt Date: 20221018
  Transmission Date: 20230112
  Serious: Yes (Hospitalization)
  Sender: FDA-Public Use
  Company Number: TN-ABBVIE-4141531

PATIENT
  Age: 55 Year
  Sex: Male

DRUGS (1)
  1. HUMIRA [Suspect]
     Active Substance: ADALIMUMAB
     Indication: Crohn^s disease
     Route: 058
     Dates: start: 20150101, end: 20220920

REACTIONS (1)
  - Haemoptysis [Not Recovered/Not Resolved]

NARRATIVE: CASE EVENT DATE: 20221001
